FAERS Safety Report 8369319-6 (Version None)
Quarter: 2012Q2

REPORT INFORMATION
  Report Type: 
  Country: None (occurrence: None)
  Receive Date: 20120517
  Receipt Date: 20120517
  Transmission Date: 20120825
  Serious: Yes (Other)
  Sender: FDA-Public Use
  Company Number: None

PATIENT
  Sex: Male

DRUGS (1)
  1. HYDROGEN PEROXIDE SOLUTION [Suspect]
     Indication: PRODUCT USED FOR UNKNOWN INDICATION
     Dosage: , 1 IN ,

REACTIONS (10)
  - MOUTH HAEMORRHAGE [None]
  - LOCAL SWELLING [None]
  - NECK PAIN [None]
  - JAW DISORDER [None]
  - OEDEMA MOUTH [None]
  - CYST RUPTURE [None]
  - SWELLING [None]
  - GINGIVAL BLEEDING [None]
  - GINGIVAL CYST [None]
  - ORAL PAIN [None]
